FAERS Safety Report 4734454-8 (Version None)
Quarter: 2005Q3

REPORT INFORMATION
  Report Type: 
  Country: None (occurrence: None)
  Receive Date: 20050804
  Receipt Date: 20050726
  Transmission Date: 20060218
  Serious: Yes (Disabling)
  Sender: FDA-Public Use
  Company Number: FR-ROCHE-411913

PATIENT
  Age: 67 Year
  Sex: Female
  Weight: 67 kg

DRUGS (14)
  1. CLONAZEPAM [Suspect]
     Indication: EPILEPSY
     Route: 048
  2. EFFEXOR [Suspect]
     Route: 048
  3. PROPRANOLOL [Suspect]
     Route: 048
     Dates: start: 20050115, end: 20050315
  4. THERALENE [Suspect]
     Route: 048
     Dates: end: 20050115
  5. IMOVANE [Suspect]
     Route: 048
  6. TERALITHE [Suspect]
     Route: 048
  7. L-THYROXINE [Concomitant]
  8. SPECIAFOLDINE [Concomitant]
  9. ATARAX [Concomitant]
  10. STAGID [Concomitant]
  11. NOVONORM [Concomitant]
  12. VASTAREL [Concomitant]
  13. TRIVASTAL [Concomitant]
  14. MODOPAR [Concomitant]

REACTIONS (1)
  - PERIPHERAL SENSORY NEUROPATHY [None]
